FAERS Safety Report 5373110-2 (Version None)
Quarter: 2007Q2

REPORT INFORMATION
  Report Type: 
  Country: None (occurrence: None)
  Receive Date: 20070626
  Receipt Date: 20070614
  Transmission Date: 20071010
  Serious: Yes (Other)
  Sender: FDA-Public Use
  Company Number: 011794

PATIENT
  Age: 37 Year
  Sex: Female

DRUGS (5)
  1. DIDANOSINE [Suspect]
     Indication: HIV INFECTION
     Dosage: 400 MG/DAY, UNK, ORAL
     Route: 048
  2. ZIDOVUDINE [Suspect]
     Indication: HIV INFECTION
     Dosage: 600 MG/DAY, UNK, ORAL
     Route: 048
  3. KALETRA [Suspect]
     Indication: HIV INFECTION
     Dosage: 4 TABLET, UNK, ORAL
     Route: 048
  4. ZIDOVUDINE [Suspect]
     Indication: PROPHYLAXIS AGAINST HIV INFECTION
     Dosage: SEE IMAGE
     Route: 042
     Dates: start: 20070517, end: 20070517
  5. ZIDOVUDINE [Suspect]
     Indication: PROPHYLAXIS AGAINST HIV INFECTION
     Dosage: SEE IMAGE
     Route: 042
     Dates: start: 20070517, end: 20070517

REACTIONS (9)
  - ATRIOVENTRICULAR BLOCK COMPLETE [None]
  - COARCTATION OF THE AORTA [None]
  - DRUG EXPOSURE BEFORE PREGNANCY [None]
  - DRUG EXPOSURE DURING PREGNANCY [None]
  - HEAT RASH [None]
  - LIVE BIRTH [None]
  - METABOLIC ACIDOSIS [None]
  - PATENT DUCTUS ARTERIOSUS [None]
  - VENTRICULAR SEPTAL DEFECT [None]
